FAERS Safety Report 6554703-3 (Version None)
Quarter: 2010Q1

REPORT INFORMATION
  Report Type: 
  Country: None (occurrence: None)
  Receive Date: 20100125
  Receipt Date: 20100108
  Transmission Date: 20100710
  Serious: Yes (Disabling)
  Sender: FDA-Public Use
  Company Number: AUR-APL-2010-00069

PATIENT
  Age: 56 Year
  Sex: Male
  Weight: 85 kg

DRUGS (2)
  1. FINASTERIDE [Suspect]
     Indication: BENIGN PROSTATIC HYPERPLASIA
     Dosage: 5MG, ORAL
     Route: 048
     Dates: start: 20090408, end: 20090526
  2. TAMSULOSIN HYDROCHLORIDE 5MG [Concomitant]

REACTIONS (4)
  - AGGRESSION [None]
  - APATHY [None]
  - HOT FLUSH [None]
  - LOSS OF LIBIDO [None]
